FAERS Safety Report 14503618 (Version 2)
Quarter: 2018Q4

REPORT INFORMATION
  Report Type: Spontaneous
  Country: US (occurrence: US)
  Receive Date: 20180208
  Receipt Date: 20181120
  Transmission Date: 20190204
  Serious: No
  Sender: FDA-Public Use
  Company Number: US-JNJFOC-20180102192

PATIENT
  Age: 59 Year
  Sex: Male

DRUGS (4)
  1. VALTREX [Concomitant]
     Active Substance: VALACYCLOVIR HYDROCHLORIDE
     Indication: PROPHYLAXIS
  2. IMBRUVICA [Suspect]
     Active Substance: IBRUTINIB
     Indication: CHRONIC LYMPHOCYTIC LEUKAEMIA
     Route: 048
     Dates: start: 20171110, end: 2017
  3. IMBRUVICA [Suspect]
     Active Substance: IBRUTINIB
     Indication: CHRONIC LYMPHOCYTIC LEUKAEMIA
     Route: 048
     Dates: start: 2017
  4. ALLOPURINOL. [Concomitant]
     Active Substance: ALLOPURINOL

REACTIONS (5)
  - Weight increased [Not Recovered/Not Resolved]
  - Atrial fibrillation [Recovered/Resolved]
  - Myalgia [Recovered/Resolved]
  - Hypovolaemia [Unknown]
  - White blood cell count abnormal [Unknown]

NARRATIVE: CASE EVENT DATE: 201711
